FAERS Safety Report 7046463-7 (Version None)
Quarter: 2010Q4

REPORT INFORMATION
  Report Type: 
  Country: None (occurrence: None)
  Receive Date: 20101014
  Receipt Date: 20101006
  Transmission Date: 20110411
  Serious: Yes (Other)
  Sender: FDA-Public Use
  Company Number: US-US-EMD SERONO, INC.-7020776

PATIENT
  Sex: Male

DRUGS (6)
  1. REBIF [Suspect]
     Indication: MULTIPLE SCLEROSIS
     Route: 058
     Dates: start: 20080401, end: 20100401
  2. REBIF [Suspect]
     Route: 058
     Dates: start: 20100901, end: 20100901
  3. VITAMIN TAB [Concomitant]
     Indication: PROPHYLAXIS
  4. FISH OIL [Concomitant]
     Indication: PROPHYLAXIS
  5. VITAMIN D [Concomitant]
     Indication: PROPHYLAXIS
  6. VITAMIN B-12 [Concomitant]
     Indication: PROPHYLAXIS

REACTIONS (3)
  - DRUG ADMINISTRATION ERROR [None]
  - INFLUENZA LIKE ILLNESS [None]
  - VENOUS STENOSIS [None]
